FAERS Safety Report 12833435 (Version 2)
Quarter: 2017Q1

REPORT INFORMATION
  Report Type: Report from Study
  Country: AU (occurrence: AU)
  Receive Date: 20161010
  Receipt Date: 20170126
  Transmission Date: 20170428
  Serious: Yes (Other)
  Sender: FDA-Public Use
  Company Number: AU-REGENERON PHARMACEUTICALS, INC.-2016-22396

PATIENT

DRUGS (1)
  1. EYLEA [Suspect]
     Active Substance: AFLIBERCEPT
     Indication: NEOVASCULAR AGE-RELATED MACULAR DEGENERATION
     Dosage: 2 MG, UNK
     Route: 031
     Dates: start: 2014

REACTIONS (8)
  - Poor quality sleep [Unknown]
  - Eye disorder [Unknown]
  - General physical health deterioration [Unknown]
  - Prostate cancer [Unknown]
  - Hepatic cancer [Unknown]
  - Lung infection [Unknown]
  - Pneumonia viral [Unknown]
  - Asthma [Unknown]

NARRATIVE: CASE EVENT DATE: 20170117
